FAERS Safety Report 8127665-5 (Version None)
Quarter: 2012Q1

REPORT INFORMATION
  Report Type: 
  Country: None (occurrence: None)
  Receive Date: 20120210
  Receipt Date: 20120209
  Transmission Date: 20120608
  Serious: No
  Sender: FDA-Public Use
  Company Number: US-PFIZER INC-2012036226

PATIENT
  Sex: Female
  Weight: 86 kg

DRUGS (2)
  1. CHANTIX [Suspect]
     Indication: SMOKING CESSATION THERAPY
     Dosage: 1 MG, 2X/DAY
     Route: 048
     Dates: start: 20110201, end: 20110901
  2. CHANTIX [Suspect]
     Dosage: 1 MG, 2X/DAY
     Route: 048
     Dates: start: 20110901

REACTIONS (5)
  - BURNING SENSATION [None]
  - NERVOUSNESS [None]
  - DYSPEPSIA [None]
  - TENSION [None]
  - STRESS [None]
